FAERS Safety Report 23956939 (Version 13)
Quarter: 2025Q3

REPORT INFORMATION
  Report Type: Spontaneous
  Country: US (occurrence: US)
  Receive Date: 20240610
  Receipt Date: 20250804
  Transmission Date: 20251020
  Serious: Yes (Other)
  Sender: PFIZER
  Company Number: US-PFIZER INC-202400187142

PATIENT
  Age: 68 Year
  Sex: Female

DRUGS (7)
  1. TUKYSA [Suspect]
     Active Substance: TUCATINIB
  2. TUKYSA [Suspect]
     Active Substance: TUCATINIB
  3. TUKYSA [Suspect]
     Active Substance: TUCATINIB
     Dosage: 50MG; 4 TABLETS TWICE DAILY
  4. TUKYSA [Suspect]
     Active Substance: TUCATINIB
     Dosage: 200 MG, DAILY
  5. TUKYSA [Suspect]
     Active Substance: TUCATINIB
     Dosage: 50MG TAKE 4 TABS (BY MOUTH) TWICE A DAY
     Route: 048
     Dates: end: 20250501
  6. ALTEPLASE [Concomitant]
     Active Substance: ALTEPLASE
  7. TRASTUZUMAB [Concomitant]
     Active Substance: TRASTUZUMAB

REACTIONS (13)
  - Thrombosis [Unknown]
  - Cerebral disorder [Unknown]
  - Arthralgia [Unknown]
  - Metastases to central nervous system [Unknown]
  - Metastasis [Unknown]
  - Cystitis [Unknown]
  - Nasopharyngitis [Unknown]
  - Faeces hard [Unknown]
  - Sinusitis [Unknown]
  - Oropharyngeal discomfort [Unknown]
  - Speech disorder [Unknown]
  - Hypoacusis [Unknown]
  - Off label use [Unknown]
